FAERS Safety Report 17402499 (Version 1)
Quarter: 2020Q1

REPORT INFORMATION
  Report Type: Spontaneous
  Country: US (occurrence: US)
  Receive Date: 20200210
  Receipt Date: 20200210
  Transmission Date: 20200409
  Serious: Yes (Other)
  Sender: FDA-Public Use
  Company Number: None

PATIENT
  Age: 74 Year
  Sex: Female
  Weight: 54.9 kg

DRUGS (13)
  1. REMICADE [Suspect]
     Active Substance: INFLIXIMAB
  2. PREDNISONE. [Suspect]
     Active Substance: PREDNISONE
  3. SIMVASTATIN. [Suspect]
     Active Substance: SIMVASTATIN
  4. BIOTIN [Suspect]
     Active Substance: BIOTIN
  5. ALLERTEC [Suspect]
     Active Substance: CETIRIZINE HYDROCHLORIDE
  6. TYLENOL ARTHRITIS PAIN [Suspect]
     Active Substance: ACETAMINOPHEN
  7. VITAMIN A [Suspect]
     Active Substance: VITAMIN A
  8. VITAMIN D3 [Suspect]
     Active Substance: CHOLECALCIFEROL
  9. VITAMIN B12 [Suspect]
     Active Substance: CYANOCOBALAMIN
  10. OMEPRAZOLE. [Suspect]
     Active Substance: OMEPRAZOLE
  11. FAMOTIDINE. [Suspect]
     Active Substance: FAMOTIDINE
  12. PREGABALIN 75 MG, NDC: 72205-0013-90 DAW: 0 NOVADOZ PHARMAC [Suspect]
     Active Substance: PREGABALIN
     Indication: NEUROPATHY PERIPHERAL
     Dosage: ?          QUANTITY:1 CAPSULE(S);?
     Route: 048
     Dates: start: 20200124, end: 20200125
  13. PREGABALIN 75 MG, NDC: 72205-0013-90 DAW: 0 NOVADOZ PHARMAC [Suspect]
     Active Substance: PREGABALIN
     Indication: NEURALGIA
     Dosage: ?          QUANTITY:1 CAPSULE(S);?
     Route: 048
     Dates: start: 20200124, end: 20200125

REACTIONS (7)
  - Pain in extremity [None]
  - Dysstasia [None]
  - Headache [None]
  - Dizziness [None]
  - Dyskinesia [None]
  - Balance disorder [None]
  - Muscle spasms [None]

NARRATIVE: CASE EVENT DATE: 20200124
